FAERS Safety Report 6083684-4 (Version None)
Quarter: 2009Q1

REPORT INFORMATION
  Report Type: 
  Country: None (occurrence: None)
  Receive Date: 20090218
  Receipt Date: 20090218
  Transmission Date: 20090719
  Serious: Yes (Other)
  Sender: FDA-Public Use
  Company Number: None

PATIENT
  Sex: Female
  Weight: 79.3795 kg

DRUGS (8)
  1. ABILIFY [Suspect]
     Indication: SCHIZOAFFECTIVE DISORDER
     Dosage: 20MG DAILY ORAL
     Route: 048
     Dates: start: 20060101
  2. GEODON [Suspect]
     Indication: SCHIZOAFFECTIVE DISORDER
     Dosage: 200MG 45 MG AM 160 MG HS ORAL
     Route: 048
     Dates: start: 20060101
  3. BENZTROPINE [Concomitant]
  4. METFORMIN [Concomitant]
  5. VENLAFAXINE HCL [Concomitant]
  6. ROZEREM [Concomitant]
  7. HYDROXYZINE [Concomitant]
  8. TOPAMAX [Concomitant]

REACTIONS (1)
  - ATRIOVENTRICULAR BLOCK [None]
